FAERS Safety Report 8600722-2 (Version None)
Quarter: 2012Q3

REPORT INFORMATION
  Report Type: 
  Country: None (occurrence: None)
  Receive Date: 20120817
  Receipt Date: 20120803
  Transmission Date: 20120928
  Serious: Yes (Congenital Anomaly)
  Sender: FDA-Public Use
  Company Number: DE-RANBAXY-2012RR-59031

PATIENT
  Sex: Female
  Weight: 3 kg

DRUGS (1)
  1. SERTRALINE HYDROCHLORIDE [Suspect]
     Dosage: 100 MG/DAY, DURING GESTATIONAL WEEKS 0-38.6, ALSO PRECONCEPTIONAL SINCE 2007
     Route: 064
     Dates: start: 20110803, end: 20120501

REACTIONS (1)
  - VENTRICULAR SEPTAL DEFECT [None]
